FAERS Safety Report 17238211 (Version 1)
Quarter: 2019Q4

REPORT INFORMATION
  Report Type: Spontaneous
  Country: US (occurrence: US)
  Receive Date: 20191211
  Receipt Date: 20191211
  Transmission Date: 20200122
  Serious: Yes (Life-Threatening, Other)
  Sender: FDA-Public Use
  Company Number: None

PATIENT
  Age: 61 Year
  Sex: Female
  Weight: 68.95 kg

DRUGS (1)
  1. MINIVELLE [Suspect]
     Active Substance: ESTRADIOL
     Indication: MENOPAUSAL SYMPTOMS
     Dosage: ?          OTHER DOSE:0.05MG;?
     Route: 058
     Dates: start: 201906, end: 201908

REACTIONS (13)
  - Abdominal distension [None]
  - Drug intolerance [None]
  - Depression [None]
  - Abdominal pain [None]
  - Suicidal ideation [None]
  - Libido decreased [None]
  - Mood swings [None]
  - Weight increased [None]
  - Product substitution issue [None]
  - Back pain [None]
  - Breast pain [None]
  - Therapeutic response changed [None]
  - Insurance issue [None]

NARRATIVE: CASE EVENT DATE: 20190625
